FAERS Safety Report 19230218 (Version 2)
Quarter: 2021Q2

REPORT INFORMATION
  Report Type: Report from Study
  Country: TW (occurrence: TW)
  Receive Date: 20210507
  Receipt Date: 20210609
  Transmission Date: 20210717
  Serious: Yes (Other)
  Sender: FDA-Public Use
  Company Number: TW-REGENERON PHARMACEUTICALS, INC.-2021-47981

PATIENT

DRUGS (2)
  1. EYLEA [Suspect]
     Active Substance: AFLIBERCEPT
     Dosage: 0.05 ML, RIGHT EYE
     Route: 031
     Dates: start: 20210428
  2. EYLEA [Suspect]
     Active Substance: AFLIBERCEPT
     Indication: NEOVASCULAR AGE-RELATED MACULAR DEGENERATION
     Dosage: 0.05 ML, RIGHT EYE
     Route: 031
     Dates: start: 202011

REACTIONS (9)
  - Haemorrhage subcutaneous [Recovered/Resolved]
  - Retinal haemorrhage [Recovering/Resolving]
  - Ocular discomfort [Unknown]
  - Eye oedema [Recovering/Resolving]
  - Wound [Recovered/Resolved]
  - Fall [Unknown]
  - Blister [Unknown]
  - Visual acuity reduced [Not Recovered/Not Resolved]
  - Eye pain [Recovered/Resolved]

NARRATIVE: CASE EVENT DATE: 202011
